FAERS Safety Report 25563644 (Version 1)
Quarter: 2025Q3

REPORT INFORMATION
  Report Type: Spontaneous
  Country: US (occurrence: US)
  Receive Date: 20250716
  Receipt Date: 20250716
  Transmission Date: 20251021
  Serious: No
  Sender: NOVO NORDISK
  Company Number: US-NOVOPROD-1289331

PATIENT
  Age: 55 Year
  Sex: Male

DRUGS (6)
  1. OZEMPIC [Suspect]
     Active Substance: SEMAGLUTIDE
     Indication: Product used for unknown indication
     Route: 058
  2. OZEMPIC [Suspect]
     Active Substance: SEMAGLUTIDE
     Dates: start: 20240114
  3. DUPIXENT [Suspect]
     Active Substance: DUPILUMAB
     Indication: Dermatitis atopic
     Route: 058
     Dates: start: 20230827
  4. DUPIXENT [Suspect]
     Active Substance: DUPILUMAB
     Route: 058
     Dates: start: 20240114
  5. METOPROLOL [Concomitant]
     Active Substance: METOPROLOL
     Indication: Product used for unknown indication
  6. UBROGEPANT [Concomitant]
     Active Substance: UBROGEPANT
     Indication: Product used for unknown indication

REACTIONS (7)
  - Muscle spasms [Unknown]
  - Eczema [Recovered/Resolved]
  - Dysgeusia [Recovered/Resolved]
  - Dizziness [Recovered/Resolved]
  - Drug hypersensitivity [Unknown]
  - Diarrhoea [Recovered/Resolved]
  - Off label use [Unknown]

NARRATIVE: CASE EVENT DATE: 20230101
